FAERS Safety Report 5444641-1 (Version None)
Quarter: 2007Q3

REPORT INFORMATION
  Report Type: 
  Country: None (occurrence: None)
  Receive Date: 20070906
  Receipt Date: 20070605
  Transmission Date: 20080115
  Serious: No
  Sender: FDA-Public Use
  Company Number: A0627528A

PATIENT
  Sex: Male

DRUGS (2)
  1. REQUIP [Suspect]
     Indication: RESTLESS LEGS SYNDROME
     Dosage: 1MG PER DAY
     Route: 048
     Dates: start: 20051101
  2. CLONAZEPAM [Concomitant]

REACTIONS (4)
  - COORDINATION ABNORMAL [None]
  - DRUG EFFECT DECREASED [None]
  - EXTRASYSTOLES [None]
  - MEMORY IMPAIRMENT [None]
